FAERS Safety Report 4894195-3 (Version None)
Quarter: 2006Q1

REPORT INFORMATION
  Report Type: 
  Country: None (occurrence: None)
  Receive Date: 20060127
  Receipt Date: 20050928
  Transmission Date: 20060701
  Serious: No
  Sender: FDA-Public Use
  Company Number: US-GLAXOSMITHKLINE-A0576479A

PATIENT
  Age: 38 Year
  Sex: Female
  Weight: 50 kg

DRUGS (2)
  1. WELLBUTRIN [Suspect]
     Dates: start: 20050101, end: 20050801
  2. UNSPECIFIED MEDICATIONS [Concomitant]

REACTIONS (1)
  - URTICARIA [None]
